FAERS Safety Report 4445216-3 (Version None)
Quarter: 2004Q3

REPORT INFORMATION
  Report Type: 
  Country: None (occurrence: None)
  Receive Date: 20040902
  Receipt Date: 20040823
  Transmission Date: 20050211
  Serious: No
  Sender: FDA-Public Use
  Company Number: 04H-163-0271546-00

PATIENT

DRUGS (8)
  1. ETOMIDATE [Suspect]
     Indication: INDUCTION OF ANAESTHESIA
     Dosage: 0.4 MG/KG, INTRAVENOUS BOLUS
     Route: 040
  2. SUCCINYLCHOLINE CHLORIDE [Suspect]
     Indication: INDUCTION OF ANAESTHESIA
     Dosage: 1 MG/KG, INTRAVENOUS
     Route: 042
  3. MORPHINE SULFATE [Concomitant]
  4. OXYGEN [Concomitant]
  5. INTRAVENOUS FLUIDS [Concomitant]
  6. SUFENTANIL [Concomitant]
  7. ENFLURANE [Concomitant]
  8. LORAZEPAM [Concomitant]

REACTIONS (2)
  - MYOCARDIAL ISCHAEMIA [None]
  - POST PROCEDURAL COMPLICATION [None]
